FAERS Safety Report 5046654-0 (Version None)
Quarter: 2006Q3

REPORT INFORMATION
  Report Type: 
  Country: None (occurrence: None)
  Receive Date: 20060707
  Receipt Date: 20060707
  Transmission Date: 20061208
  Serious: Yes (Other)
  Sender: FDA-Public Use
  Company Number: None

PATIENT
  Age: 82 Year
  Sex: Female
  Weight: 48.0813 kg

DRUGS (1)
  1. PREGABALIN 50 MG PFIZER [Suspect]
     Indication: NEURALGIA
     Dosage: 50 MG DAILY IN AM PO
     Route: 048
     Dates: start: 20060602, end: 20060626

REACTIONS (2)
  - BLOOD GLUCOSE INCREASED [None]
  - HYPOGLYCAEMIA [None]
